FAERS Safety Report 12600972 (Version 1)
Quarter: 2016Q3

REPORT INFORMATION
  Report Type: Report from Study
  Country: ES (occurrence: ES)
  Receive Date: 20160728
  Receipt Date: 20160728
  Transmission Date: 20161109
  Serious: Yes (Other)
  Sender: FDA-Public Use
  Company Number: ES-ABBVIE-16P-144-1584803-00

PATIENT
  Age: 63 Year
  Sex: Female
  Weight: 58 kg

DRUGS (8)
  1. VIEKIRAX [Suspect]
     Active Substance: OMBITASVIR\PARITAPREVIR\RITONAVIR
     Indication: HEPATITIS C
     Route: 048
     Dates: start: 20160311, end: 20160602
  2. EXVIERA [Suspect]
     Active Substance: DASABUVIR
     Indication: HEPATITIS C
     Route: 048
     Dates: start: 20160311, end: 20160602
  3. OMEPRAZOL [Concomitant]
     Active Substance: OMEPRAZOLE
     Indication: DYSPEPSIA
     Route: 048
  4. NEUPRO [Concomitant]
     Active Substance: ROTIGOTINE
     Indication: PARKINSON^S DISEASE
     Route: 048
  5. MIRAPEXIN [Concomitant]
     Active Substance: PRAMIPEXOLE
     Indication: PARKINSON^S DISEASE
     Route: 048
  6. CAPTOPRIL. [Concomitant]
     Active Substance: CAPTOPRIL
     Indication: HYPERTENSION
     Route: 048
  7. DUPHALAC [Concomitant]
     Active Substance: LACTULOSE
     Indication: CONSTIPATION
     Route: 048
  8. VENLAFAXINA [Concomitant]
     Active Substance: VENLAFAXINE HYDROCHLORIDE
     Indication: DEPRESSION
     Route: 048

REACTIONS (22)
  - Vitreous detachment [Not Recovered/Not Resolved]
  - Polydipsia [Not Recovered/Not Resolved]
  - Palpitations [Recovering/Resolving]
  - Constipation [Recovered/Resolved]
  - Chromaturia [Not Recovered/Not Resolved]
  - Skin discolouration [Recovered/Resolved]
  - Headache [Recovering/Resolving]
  - Feeling of body temperature change [Not Recovered/Not Resolved]
  - Medication residue present [Recovered/Resolved]
  - Back pain [Not Recovered/Not Resolved]
  - Arthralgia [Not Recovered/Not Resolved]
  - Urinary incontinence [Recovering/Resolving]
  - Arthralgia [Not Recovered/Not Resolved]
  - Abdominal distension [Recovered/Resolved]
  - Weight increased [Not Recovered/Not Resolved]
  - Fatigue [Not Recovered/Not Resolved]
  - Flatulence [Recovered/Resolved]
  - Hyperhidrosis [Not Recovered/Not Resolved]
  - Blood pressure increased [Recovered/Resolved]
  - Dry skin [Not Recovered/Not Resolved]
  - Feeling abnormal [Recovering/Resolving]
  - Vomiting [Recovered/Resolved]

NARRATIVE: CASE EVENT DATE: 20160311
